FAERS Safety Report 21702783 (Version 3)
Quarter: 2023Q1

REPORT INFORMATION
  Report Type: Report from Study
  Country: US (occurrence: US)
  Receive Date: 20221209
  Receipt Date: 20230210
  Transmission Date: 20230417
  Serious: Yes (Other)
  Sender: FDA-Public Use
  Company Number: US-ABBVIE-4227714

PATIENT
  Sex: Female

DRUGS (7)
  1. RINVOQ [Suspect]
     Active Substance: UPADACITINIB
     Indication: Rheumatoid arthritis
     Route: 048
  2. COLACE [Concomitant]
     Active Substance: DOCUSATE SODIUM
     Indication: Faeces hard
  3. Covid-19 Vaccine [Concomitant]
     Indication: COVID-19 immunisation
     Dosage: 1 IN ONCE
     Route: 030
  4. VITAMINS D3 [Concomitant]
     Indication: Product used for unknown indication
  5. GABAPENTIN [Concomitant]
     Active Substance: GABAPENTIN
     Indication: Product used for unknown indication
  6. INFLUENZA VIRUS VACCINE [Concomitant]
     Active Substance: INFLUENZA VIRUS VACCINE
     Indication: Product used for unknown indication
  7. LEVOTHYROXINE [Concomitant]
     Active Substance: LEVOTHYROXINE
     Indication: Hypothyroidism

REACTIONS (8)
  - Cardiomegaly [Not Recovered/Not Resolved]
  - Pneumonia [Not Recovered/Not Resolved]
  - Fall [Recovered/Resolved]
  - COVID-19 [Not Recovered/Not Resolved]
  - Weight increased [Unknown]
  - Stenosis [Unknown]
  - Chest discomfort [Unknown]
  - Unevaluable event [Unknown]

NARRATIVE: CASE EVENT DATE: 20210101
